FAERS Safety Report 6928887-9 (Version None)
Quarter: 2010Q3

REPORT INFORMATION
  Report Type: 
  Country: None (occurrence: None)
  Receive Date: 20100817
  Receipt Date: 20100803
  Transmission Date: 20110219
  Serious: Yes (Other)
  Sender: FDA-Public Use
  Company Number: US-MYLANLABS-2010S1014058

PATIENT
  Age: 55 Year
  Sex: Male

DRUGS (5)
  1. FOSPHENYTOIN [Interacting]
     Indication: CONVULSION PROPHYLAXIS
     Dosage: 1G LOADING DOSE
     Route: 041
  2. PHENYTOIN [Suspect]
     Indication: CONVULSION PROPHYLAXIS
     Dosage: 100MG 3 TIMES DAILY
     Route: 042
  3. ESOMEPRAZOLE MAGNESIUM [Interacting]
     Dosage: 40MG TIWCE DAILY
     Route: 042
  4. LABETALOL [Concomitant]
     Indication: HYPERTENSION
     Route: 065
  5. LORAZEPAM [Concomitant]
     Route: 065

REACTIONS (5)
  - DRUG INTERACTION [None]
  - HYPOTENSION [None]
  - LIVER DISORDER [None]
  - RENAL FAILURE [None]
  - THROMBOCYTOPENIA [None]
